FAERS Safety Report 9407148 (Version 1)
Quarter: 2013Q3

REPORT INFORMATION
  Report Type: Spontaneous
  Country: US (occurrence: US)
  Receive Date: 20130718
  Receipt Date: 20130718
  Transmission Date: 20140515
  Serious: Yes (Other)
  Sender: FDA-Public Use
  Company Number: PHHY2013US074189

PATIENT
  Age: 16 Year
  Sex: Male

DRUGS (1)
  1. TRIAMCINOLONE [Suspect]
     Indication: EPISTAXIS
     Dosage: 32 MG, UNK

REACTIONS (12)
  - Retinal vascular disorder [Unknown]
  - Retinal artery embolism [Unknown]
  - Visual acuity tests abnormal [Unknown]
  - Visual field defect [Unknown]
  - Blindness [Unknown]
  - Optic atrophy [Unknown]
  - Retinal degeneration [Unknown]
  - Nausea [Unknown]
  - Vomiting [Unknown]
  - Eyelid ptosis [Unknown]
  - Eye pain [Unknown]
  - Papilloedema [Unknown]
